FAERS Safety Report 6466211-9 (Version None)
Quarter: 2009Q4

REPORT INFORMATION
  Report Type: 
  Country: None (occurrence: None)
  Receive Date: 20091202
  Receipt Date: 20091118
  Transmission Date: 20100525
  Serious: Yes (Hospitalization, Other)
  Sender: FDA-Public Use
  Company Number: PHHY2009NO52220

PATIENT
  Sex: Male

DRUGS (30)
  1. VOLTAREN [Suspect]
     Indication: ARTHRALGIA
     Dosage: UNK
     Dates: start: 19960101
  2. VOLTAREN [Suspect]
     Indication: HEADACHE
     Dosage: 100 MG, 1 X 1 (5 TBL)
     Dates: start: 20030331
  3. VOLTAREN [Suspect]
     Indication: SINUSITIS
     Dosage: 20 MG, 1 X 2  (20 TBL)
     Dates: start: 20030401
  4. VOLTAREN [Suspect]
     Indication: MIGRAINE
     Dosage: UNK
     Dates: start: 20050901
  5. PARALGIN FORTE [Concomitant]
     Indication: ARTHRALGIA
     Dosage: 1 X 3 (5 SUPP)
     Dates: start: 20030303
  6. PARALGIN FORTE [Concomitant]
     Indication: EAR INFECTION
     Dosage: 1 X 3 ( 20 TBL)
     Dates: start: 20030401
  7. PARALGIN FORTE [Concomitant]
     Indication: HEADACHE
     Dosage: 1 X 3 ( 20 TBL)
     Dates: start: 20030616
  8. PARALGIN FORTE [Concomitant]
     Indication: ACUTE SINUSITIS
     Dosage: 1 X 3 (100 TBL)
     Dates: start: 20051011
  9. PARALGIN FORTE [Concomitant]
     Dosage: 1 X 3 (100 TBL)
     Dates: start: 20051116
  10. PARALGIN FORTE [Concomitant]
     Dosage: 1 X 3 (100 TBL)
     Dates: start: 20051202
  11. PARALGIN FORTE [Concomitant]
     Dosage: 1X4
     Dates: start: 20060130
  12. ARCOXIA [Concomitant]
     Indication: ARTHRALGIA
     Dosage: 90 MG 1 X 1- 1 X 2
  13. ARCOXIA [Concomitant]
     Dosage: 60 MG 1 X 1-2 (28TBL)
     Dates: start: 20051116
  14. ARCOXIA [Concomitant]
     Dosage: WHEN NEEDED
     Dates: start: 20051227
  15. GAVISCON [Concomitant]
     Indication: DYSPEPSIA
     Dosage: 20 TBL
  16. NOZINAN [Concomitant]
     Dosage: 5 MG (50TBL)
     Dates: start: 20051125
  17. LACTULOSE [Concomitant]
     Indication: CONSTIPATION
     Dosage: 10ML X 2
  18. ARTHROTEC [Concomitant]
     Indication: PAIN
  19. ERYMAX [Concomitant]
     Indication: COUGH
     Dosage: 250MG 2 X 2 (40 ENTEROCAPSULES)
     Dates: start: 20040607
  20. ERYMAX [Concomitant]
     Indication: PYREXIA
     Dosage: 250MG 2 X 2 (40 ENTEROCAPSULES)
     Dates: start: 20051025
  21. ERYMAX [Concomitant]
     Indication: BRONCHITIS
  22. IBUX [Concomitant]
     Indication: ARTHRALGIA
     Dosage: UNK
     Dates: start: 20050825
  23. ANTIINFLAMMATORY [Concomitant]
     Indication: ARTHRALGIA
  24. ANALGESICS [Concomitant]
     Indication: ARTHRALGIA
  25. AMOXICILLIN [Concomitant]
     Indication: ACUTE SINUSITIS
     Dosage: 375MG, 1 X 3 (20TBL)
  26. AMOXICILLIN [Concomitant]
     Indication: EAR INFECTION
     Dosage: 500 MG, 1 X 3 (30CAP)
     Dates: start: 20030408
  27. DICLOFENAC [Concomitant]
     Indication: PAIN
  28. NSAID'S [Concomitant]
     Indication: PAIN
     Dosage: OVER A LONG PERIOD
  29. PARALGIN FORTE [Concomitant]
     Indication: MIGRAINE
     Dosage: 1 X 3 (5 SUPP)
  30. PARALGIN FORTE [Concomitant]
     Indication: SINUSITIS

REACTIONS (11)
  - ABDOMINAL PAIN UPPER [None]
  - BLOOD PRESSURE INCREASED [None]
  - DRUG ABUSE [None]
  - DUODENITIS [None]
  - GASTRITIS [None]
  - HIP SURGERY [None]
  - JOINT INJURY [None]
  - NAUSEA [None]
  - PANCREATITIS [None]
  - PYREXIA [None]
  - VOMITING [None]
